FAERS Safety Report 23697711 (Version 2)
Quarter: 2024Q2

REPORT INFORMATION
  Report Type: Spontaneous
  Country: KR (occurrence: KR)
  Receive Date: 20240402
  Receipt Date: 20240430
  Transmission Date: 20240716
  Serious: No
  Sender: FDA-Public Use
  Company Number: KR-PFIZER INC-PV202400037728

PATIENT
  Age: 5 Year
  Sex: Male

DRUGS (1)
  1. NGENLA [Suspect]
     Active Substance: SOMATROGON-GHLA
     Dosage: ONCE A WEEK
     Route: 058
     Dates: start: 20240110, end: 20240313

REACTIONS (1)
  - Injection site pain [Recovered/Resolved]
